FAERS Safety Report 15796849 (Version 1)
Quarter: 2019Q1

REPORT INFORMATION
  Report Type: Spontaneous
  Country: US (occurrence: US)
  Receive Date: 20190108
  Receipt Date: 20190108
  Transmission Date: 20190417
  Serious: No
  Sender: FDA-Public Use
  Company Number: US-APOTEX-2018AP021578

PATIENT
  Age: 32 Year
  Sex: Male
  Weight: 162.3 kg

DRUGS (1)
  1. LITHIUM CARBONATE. [Suspect]
     Active Substance: LITHIUM CARBONATE
     Indication: MANIA
     Dosage: UNK LOW DOSE
     Route: 065

REACTIONS (6)
  - Weight increased [Recovering/Resolving]
  - Anger [Unknown]
  - Somnolence [Recovering/Resolving]
  - Treatment noncompliance [Unknown]
  - Fatigue [Recovering/Resolving]
  - Agitation [Unknown]
